FAERS Safety Report 25427002 (Version 1)
Quarter: 2025Q2

REPORT INFORMATION
  Report Type: Report from Study
  Country: US (occurrence: US)
  Receive Date: 20250612
  Receipt Date: 20250612
  Transmission Date: 20250716
  Serious: Yes (Death, Other)
  Sender: AMNEAL
  Company Number: US-AMNEAL PHARMACEUTICALS-2025-AMRX-02186

PATIENT
  Sex: Female

DRUGS (2)
  1. CARBIDOPA\LEVODOPA [Suspect]
     Active Substance: CARBIDOPA\LEVODOPA
     Indication: Product used for unknown indication
     Dosage: 95/23.75 MG, 09 CAPSULES (02 CAPSULES AT 06AM, 03 CAPSULES AT 12PM AND 06PM, AND 01 CAPSULE AT 10PM)
     Route: 048
  2. CARBIDOPA\LEVODOPA [Suspect]
     Active Substance: CARBIDOPA\LEVODOPA
     Dosage: 95/23.75 MG, 07 CAPSULES (02 CAPSULES AT 06AM AND 12PM, 02 CAPSULES AT 06PM AND 01 CAPSULE AT 10PM),
     Route: 048
     Dates: start: 20220719

REACTIONS (1)
  - Embolic pneumonia [Fatal]
